FAERS Safety Report 7294236-2 (Version None)
Quarter: 2011Q1

REPORT INFORMATION
  Report Type: 
  Country: None (occurrence: None)
  Receive Date: 20110215
  Receipt Date: 20100726
  Transmission Date: 20110831
  Serious: Yes (Death, Hospitalization)
  Sender: FDA-Public Use
  Company Number: US-BRISTOL-MYERS SQUIBB COMPANY-15546674

PATIENT
  Age: 74 Year
  Sex: Male
  Weight: 78 kg

DRUGS (9)
  1. CARBOPLATIN [Suspect]
     Indication: NON-SMALL CELL LUNG CANCER
     Dosage: LAST DOSE:27JAN10,CYCLE1,D15 AUC6 OVER 15-30 MIN ON D1 AND D22,EVERY 6 WK FOR CYCLES 1 AND 2
     Route: 042
     Dates: start: 20100106, end: 20100127
  2. CETUXIMAB [Suspect]
     Indication: NON-SMALL CELL LUNG CANCER
     Dosage: 6JAN10 400MG/M2,D1 JAN10-27JAN10 250MG/M2,D1,8,15,22,29,36 OF C2 LAST DOSE:27JAN10,CYCLE1,D15
     Route: 042
     Dates: start: 20100106, end: 20100127
  3. PACLITAXEL [Suspect]
     Indication: NON-SMALL CELL LUNG CANCER
     Dosage: LAST DOSE:27JAN10,CYCLE1,D15 200MG/M2 OVER 3 HRS ON D1 AND D22
     Route: 042
     Dates: start: 20100106, end: 20100127
  4. METOPROLOL [Concomitant]
  5. CYMBALTA [Concomitant]
  6. HYDROCHLOROTHIAZIDE [Concomitant]
  7. NORCO [Concomitant]
  8. FLOMAX [Concomitant]
  9. LUNESTA [Concomitant]

REACTIONS (4)
  - NEUTROPENIA [None]
  - HYPOXIA [None]
  - PNEUMONITIS [None]
  - CEREBRAL ISCHAEMIA [None]
